FAERS Safety Report 4902951-8 (Version None)
Quarter: 2006Q1

REPORT INFORMATION
  Report Type: 
  Country: None (occurrence: None)
  Receive Date: 20060207
  Receipt Date: 20060202
  Transmission Date: 20060701
  Serious: Yes (Other)
  Sender: FDA-Public Use
  Company Number: PHBS2006CL01826

PATIENT
  Age: 65 Year
  Sex: Female

DRUGS (4)
  1. TAREG [Suspect]
     Dosage: 160 MG/DAY
     Route: 048
     Dates: start: 20020101
  2. TAREG [Suspect]
     Dosage: 80 MG/DAY
     Route: 048
  3. CALCIUM GLUCONATE [Concomitant]
  4. ATORVASTATIN CALCIUM [Concomitant]

REACTIONS (3)
  - HIP SURGERY [None]
  - MYALGIA [None]
  - PULMONARY THROMBOSIS [None]
